FAERS Safety Report 9659621 (Version 2)
Quarter: 2013Q4

REPORT INFORMATION
  Report Type: Spontaneous
  Country: FI (occurrence: FI)
  Receive Date: 20131031
  Receipt Date: 20131031
  Transmission Date: 20140711
  Serious: Yes (Other)
  Sender: FDA-Public Use
  Company Number: FI-JNJFOC-20131014587

PATIENT
  Age: 25 Year
  Sex: Male

DRUGS (4)
  1. REMICADE [Suspect]
     Indication: CROHN^S DISEASE
     Route: 042
     Dates: start: 20130925
  2. REMICADE [Suspect]
     Indication: CROHN^S DISEASE
     Route: 042
     Dates: start: 20131014, end: 20131014
  3. AZAMUN [Concomitant]
     Route: 065
  4. PENTASA [Concomitant]
     Route: 065

REACTIONS (5)
  - Infusion related reaction [Recovered/Resolved]
  - Vision blurred [Recovered/Resolved]
  - Muscle spasms [Unknown]
  - Pyrexia [Unknown]
  - C-reactive protein increased [Unknown]
